FAERS Safety Report 15758292 (Version 2)
Quarter: 2019Q1

REPORT INFORMATION
  Report Type: Report from Study
  Country: US (occurrence: US)
  Receive Date: 20181225
  Receipt Date: 20190104
  Transmission Date: 20190417
  Serious: No
  Sender: FDA-Public Use
  Company Number: PHEH2018US054107

PATIENT
  Sex: Male

DRUGS (1)
  1. COSENTYX [Suspect]
     Active Substance: SECUKINUMAB
     Indication: PRODUCT USED FOR UNKNOWN INDICATION
     Route: 065

REACTIONS (6)
  - Lip swelling [Unknown]
  - Swelling face [Recovering/Resolving]
  - Urticaria [Recovering/Resolving]
  - Eye swelling [Unknown]
  - Sensation of foreign body [Unknown]
  - Pharyngeal oedema [Unknown]
